FAERS Safety Report 5131358-6 (Version None)
Quarter: 2006Q4

REPORT INFORMATION
  Report Type: 
  Country: None (occurrence: None)
  Receive Date: 20061016
  Receipt Date: 20061005
  Transmission Date: 20070319
  Serious: Yes (Hospitalization, Other)
  Sender: FDA-Public Use
  Company Number: 235622K06USA

PATIENT
  Age: 57 Year
  Sex: Female

DRUGS (3)
  1. REBIF [Suspect]
     Indication: MULTIPLE SCLEROSIS
     Dosage: 22 MCG, 3 IN 1 WEEKS, SUBCUTANEOUS; 44 MCG, 3 IN I WEEKS, SUBCUTANEOUS
     Route: 058
     Dates: start: 20060101, end: 20060101
  2. REBIF [Suspect]
     Indication: MULTIPLE SCLEROSIS
     Dosage: 22 MCG, 3 IN 1 WEEKS, SUBCUTANEOUS; 44 MCG, 3 IN I WEEKS, SUBCUTANEOUS
     Route: 058
     Dates: start: 20060811, end: 20060101
  3. ADVIL [Concomitant]

REACTIONS (10)
  - ASTHENIA [None]
  - DIABETES MELLITUS INADEQUATE CONTROL [None]
  - DIARRHOEA [None]
  - DISORIENTATION [None]
  - HYPERHIDROSIS [None]
  - MULTIPLE SCLEROSIS RELAPSE [None]
  - PRURITUS [None]
  - RASH ERYTHEMATOUS [None]
  - SKIN WARM [None]
  - VISUAL DISTURBANCE [None]
